FAERS Safety Report 20730425 (Version 3)
Quarter: 2022Q2

REPORT INFORMATION
  Report Type: Spontaneous
  Country: FR (occurrence: None)
  Receive Date: 20220420
  Receipt Date: 20220525
  Transmission Date: 20220721
  Serious: Yes (Life-Threatening, Hospitalization, Other)
  Sender: FDA-Public Use
  Company Number: FR-Orion Corporation ORION PHARMA-TREX2022-0071

PATIENT
  Age: 62 Year
  Sex: Female
  Weight: 80 kg

DRUGS (1)
  1. METHOTREXATE SODIUM [Suspect]
     Active Substance: METHOTREXATE SODIUM
     Indication: Rheumatoid arthritis
     Route: 048
     Dates: start: 20220315, end: 20220322

REACTIONS (12)
  - Accidental overdose [Recovered/Resolved]
  - Inappropriate schedule of product administration [Recovered/Resolved]
  - Stomatitis [Not Recovered/Not Resolved]
  - Vulvovaginal inflammation [Not Recovered/Not Resolved]
  - Bone marrow failure [Recovering/Resolving]
  - Pancytopenia [Recovering/Resolving]
  - Oesophagitis [Not Recovered/Not Resolved]
  - Folate deficiency [Unknown]
  - Pyrexia [Unknown]
  - Renal impairment [Unknown]
  - Vulvovaginal injury [Not Recovered/Not Resolved]
  - Genital discharge [Not Recovered/Not Resolved]

NARRATIVE: CASE EVENT DATE: 20220315
